FAERS Safety Report 8608269-4 (Version None)
Quarter: 2012Q3

REPORT INFORMATION
  Report Type: 
  Country: None (occurrence: None)
  Receive Date: 20120821
  Receipt Date: 20120813
  Transmission Date: 20120928
  Serious: Yes (Hospitalization)
  Sender: FDA-Public Use
  Company Number: BR-SANOFI-AVENTIS-2012SA058466

PATIENT
  Sex: Female

DRUGS (2)
  1. AUTOPEN 24 [Suspect]
     Indication: DEVICE THERAPY
     Dates: start: 20040101
  2. LANTUS [Suspect]
     Dosage: 28 OR 32 IU
     Route: 058
     Dates: start: 20040101

REACTIONS (2)
  - ISCHAEMIA [None]
  - PULMONARY OEDEMA [None]
